FAERS Safety Report 14155935 (Version 2)
Quarter: 2018Q1

REPORT INFORMATION
  Report Type: Spontaneous
  Country: ES (occurrence: ES)
  Receive Date: 20171103
  Receipt Date: 20180201
  Transmission Date: 20180508
  Serious: Yes (Other)
  Sender: FDA-Public Use
  Company Number: ES-HQ SPECIALTY-ES-2017INT000391

PATIENT
  Age: 68 Year
  Sex: Female

DRUGS (6)
  1. AMOX+AC CLAV ACV [Concomitant]
     Indication: CHRONIC OBSTRUCTIVE PULMONARY DISEASE
     Dosage: 1 GR/8H (1 G,3 IN 1 D)
     Route: 042
     Dates: start: 20170302, end: 20170304
  2. DEXMEDETOMIDINE HYDROCHLORIDE. [Suspect]
     Active Substance: DEXMEDETOMIDINE HYDROCHLORIDE
     Indication: SEDATION
     Dosage: 100 MCG/ML, 400 MG PC
     Route: 042
     Dates: start: 20170304, end: 20170309
  3. ENOXAPARIN [Concomitant]
     Active Substance: ENOXAPARIN
     Indication: THROMBOSIS
     Dosage: 40 MG, UNK
     Route: 058
     Dates: start: 20170302, end: 20170304
  4. SALMETEROL/FLUTICASONE CASCAN [Concomitant]
     Active Substance: FLUTICASONE PROPIONATE\SALMETEROL XINAFOATE
     Indication: CHRONIC OBSTRUCTIVE PULMONARY DISEASE
     Dosage: 2-0-2
     Route: 055
     Dates: start: 20170302
  5. METHYLPREDNISOLONE. [Concomitant]
     Active Substance: METHYLPREDNISOLONE
     Indication: CHRONIC OBSTRUCTIVE PULMONARY DISEASE
     Dosage: 40 MG PER 8 HOURS IN DESCENDING ORDER
     Route: 042
     Dates: start: 20170302
  6. RANITIDINE. [Concomitant]
     Active Substance: RANITIDINE
     Indication: THERAPEUTIC PROCEDURE
     Dosage: 50 MG, 8 H
     Route: 042
     Dates: start: 20170302

REACTIONS (1)
  - Hepatitis acute [Recovered/Resolved]

NARRATIVE: CASE EVENT DATE: 20170309
